FAERS Safety Report 20659006 (Version 1)
Quarter: 2022Q1

REPORT INFORMATION
  Report Type: Spontaneous
  Country: CN (occurrence: CN)
  Receive Date: 20220331
  Receipt Date: 20220331
  Transmission Date: 20220423
  Serious: Yes (Hospitalization)
  Sender: FDA-Public Use
  Company Number: CN-PFIZER INC-202200451983

PATIENT
  Age: 54 Year
  Sex: Female
  Weight: 72 kg

DRUGS (3)
  1. EPIRUBICIN [Suspect]
     Active Substance: EPIRUBICIN
     Indication: Neoplasm
     Dosage: 115 MG, 1X/DAY
     Route: 041
     Dates: start: 20220304, end: 20220304
  2. PACLITAXEL [Suspect]
     Active Substance: PACLITAXEL
     Indication: Neoplasm
     Dosage: 460 MG, 1X/DAY
     Route: 041
     Dates: start: 20220304, end: 20220304
  3. CYCLOPHOSPHAMIDE [Suspect]
     Active Substance: CYCLOPHOSPHAMIDE
     Indication: Neoplasm
     Dosage: 850 MG, 1X/DAY
     Route: 041
     Dates: start: 20220304, end: 20220304

REACTIONS (1)
  - Drug-induced liver injury [Recovering/Resolving]

NARRATIVE: CASE EVENT DATE: 20220314
